FAERS Safety Report 9408413 (Version 2)
Quarter: 2013Q3

REPORT INFORMATION
  Report Type: Spontaneous
  Country: NL (occurrence: None)
  Receive Date: 20130716
  Receipt Date: 20130919
  Transmission Date: 20140515
  Serious: Yes (Other)
  Sender: FDA-Public Use
  Company Number: ACO_37355_2013

PATIENT
  Age: 59 Year
  Sex: 0

DRUGS (1)
  1. FAMPYRA [Suspect]
     Indication: PRODUCT USED FOR UNKNOWN INDICATION
     Route: 048
     Dates: end: 20120619

REACTIONS (2)
  - Epilepsy [None]
  - No adverse event [None]
